FAERS Safety Report 5866941-3 (Version None)
Quarter: 2008Q3

REPORT INFORMATION
  Report Type: 
  Country: None (occurrence: None)
  Receive Date: 20080828
  Receipt Date: 20080828
  Transmission Date: 20090109
  Serious: Yes (Hospitalization)
  Sender: FDA-Public Use
  Company Number: None

PATIENT
  Age: 64 Year
  Sex: Female
  Weight: 119 kg

DRUGS (24)
  1. IFEX [Suspect]
     Indication: SARCOMA
     Dosage: 18GM 1 IV
     Route: 042
     Dates: start: 20080611
  2. OMEPRAZOLE [Concomitant]
  3. CELEBREX [Concomitant]
  4. GLUCOSAMINE/CHRONDROITIN [Concomitant]
  5. LETROZOLE [Concomitant]
  6. AMITRIPTYLINE HCL [Concomitant]
  7. HYDROCHLOROTHIAZIDE [Concomitant]
  8. ASPIRIN [Concomitant]
  9. RISEDRONATE SODIUM [Concomitant]
  10. FLUTICASONE-SALMETEROL [Concomitant]
  11. BUDESONIDE NASAL INHALER [Concomitant]
  12. OLETRIPTAN [Concomitant]
  13. OLOPATADINE [Concomitant]
  14. DEXTROMOTHORPHAN-GUAIFENESIN [Concomitant]
  15. ALBUTEROL [Concomitant]
  16. OXYCODONE AND ACETAMINOPHEN [Concomitant]
  17. CALCIUM-VITAMIN D [Concomitant]
  18. ONDANSETRON [Concomitant]
  19. METOCLOPRAMIDE [Concomitant]
  20. SODIUM BICARBONATE [Concomitant]
  21. POTASSIUM CHLORIDE [Concomitant]
  22. PSEUDOEPHEDRINE HCL/TRIPROLIDINE HCL [Concomitant]
  23. MULTI-VITAMIN WITH MINERALS [Concomitant]
  24. METOPROLOL TARTRATE [Concomitant]

REACTIONS (13)
  - DEHYDRATION [None]
  - ENCEPHALOPATHY [None]
  - FEBRILE NEUTROPENIA [None]
  - HAEMOGLOBIN DECREASED [None]
  - HYPOKALAEMIA [None]
  - HYPOMAGNESAEMIA [None]
  - METABOLIC ACIDOSIS [None]
  - NAUSEA [None]
  - PLATELET COUNT DECREASED [None]
  - RENAL FAILURE [None]
  - RENAL TUBULAR NECROSIS [None]
  - URINARY TRACT INFECTION [None]
  - WHITE BLOOD CELL COUNT DECREASED [None]
